FAERS Safety Report 19398042 (Version 1)
Quarter: 2021Q2

REPORT INFORMATION
  Report Type: Spontaneous
  Country: US (occurrence: US)
  Receive Date: 20210609
  Receipt Date: 20210609
  Transmission Date: 20210717
  Serious: Yes (Hospitalization, Disabling)
  Sender: FDA-Public Use
  Company Number: None

PATIENT
  Age: 78 Year
  Sex: Male
  Weight: 74.5 kg

DRUGS (1)
  1. PEMBROLIZUMAB. [Suspect]
     Active Substance: PEMBROLIZUMAB
     Indication: HODGKIN^S DISEASE
     Dosage: ?          OTHER FREQUENCY:EVERY 21 DAYS;?
     Route: 042
     Dates: start: 20201016, end: 20210601

REACTIONS (8)
  - Colitis [None]
  - Abdominal tenderness [None]
  - Abdominal pain [None]
  - Small intestinal perforation [None]
  - White blood cell count increased [None]
  - Lactic acidosis [None]
  - Gastrointestinal necrosis [None]
  - Gastrointestinal wall thickening [None]

NARRATIVE: CASE EVENT DATE: 20210607
